FAERS Safety Report 12887426 (Version 3)
Quarter: 2016Q4

REPORT INFORMATION
  Report Type: Report from Study
  Country: US (occurrence: US)
  Receive Date: 20161026
  Receipt Date: 20161213
  Transmission Date: 20170207
  Serious: Yes (Death, Hospitalization)
  Sender: FDA-Public Use
  Company Number: PHHO2016US015471

PATIENT
  Age: 5 Year
  Sex: Male
  Weight: 29.2 kg

DRUGS (2)
  1. FARYDAK [Suspect]
     Active Substance: PANOBINOSTAT
     Indication: GLIOMA
     Dosage: 10 MG, THREE TIMES A WEEK
     Route: 048
     Dates: start: 20160801, end: 20160831
  2. DECADRON [Suspect]
     Active Substance: DEXAMETHASONE
     Indication: PRODUCT USED FOR UNKNOWN INDICATION
     Route: 065

REACTIONS (8)
  - Apnoea [Recovered/Resolved]
  - Posterior reversible encephalopathy syndrome [Not Recovered/Not Resolved]
  - Abdominal pain [Recovered/Resolved]
  - Depressed level of consciousness [Not Recovered/Not Resolved]
  - Malignant neoplasm progression [Fatal]
  - Seizure [Recovered/Resolved]
  - Hypertension [Not Recovered/Not Resolved]
  - Glioma [Fatal]

NARRATIVE: CASE EVENT DATE: 20160901
